FAERS Safety Report 5481265-4 (Version None)
Quarter: 2007Q4

REPORT INFORMATION
  Report Type: 
  Country: None (occurrence: None)
  Receive Date: 20071005
  Receipt Date: 20071005
  Transmission Date: 20080405
  Serious: Yes (Hospitalization)
  Sender: FDA-Public Use
  Company Number: None

PATIENT
  Age: 43 Year
  Sex: Male
  Weight: 105.6881 kg

DRUGS (6)
  1. METHOTREXATE [Suspect]
     Indication: BURKITT'S LYMPHOMA STAGE I
     Dosage: 200MG/M2 OVER 2 HOURS  IV DRIP THEN 800MG/M2 OVER NEXT 22 HOURS IV DRIP
     Route: 041
     Dates: start: 20070827, end: 20070828
  2. BENADRYL [Concomitant]
  3. DECADRON [Concomitant]
  4. CYTOSINE ARABINOSIDE [Concomitant]
  5. RITUXAN [Concomitant]
  6. LEUCOVORIN [Concomitant]

REACTIONS (2)
  - RENAL FAILURE ACUTE [None]
  - THERAPEUTIC AGENT TOXICITY [None]
